FAERS Safety Report 5022090-8 (Version None)
Quarter: 2006Q2

REPORT INFORMATION
  Report Type: 
  Country: None (occurrence: None)
  Receive Date: 20060605
  Receipt Date: 20060529
  Transmission Date: 20061013
  Serious: Yes (Hospitalization)
  Sender: FDA-Public Use
  Company Number: 2006-142255-NL

PATIENT
  Age: 42 Year
  Sex: Female

DRUGS (3)
  1. PANCURONIUM [Suspect]
     Indication: ANAESTHESIA
     Dosage: INTRAVEOUS (NOS)
     Route: 042
     Dates: start: 19940512
  2. THIOPENTAL SODIUM [Concomitant]
  3. SUFENTANIL CITRATE [Concomitant]

REACTIONS (2)
  - ANAPHYLACTIC SHOCK [None]
  - DRUG HYPERSENSITIVITY [None]
